FAERS Safety Report 4288492-2 (Version None)
Quarter: 2004Q1

REPORT INFORMATION
  Report Type: 
  Country: None (occurrence: None)
  Receive Date: 20040205
  Receipt Date: 20040120
  Transmission Date: 20041129
  Serious: Yes (Other)
  Sender: FDA-Public Use
  Company Number: USA040157073

PATIENT
  Age: 62 Year
  Sex: Female
  Weight: 54 kg

DRUGS (7)
  1. HUMULIN R [Suspect]
  2. HUMALOG [Suspect]
     Dosage: 3 U/3 DAY
     Dates: start: 19990101
  3. HUMULIN N [Suspect]
  4. HUMULIN L [Suspect]
  5. SYNTHROID [Concomitant]
  6. COZAAR [Concomitant]
  7. LANTUS [Concomitant]

REACTIONS (8)
  - BLOOD GLUCOSE INCREASED [None]
  - CATARACT OPERATION [None]
  - DEPRESSION [None]
  - HYPOTHYROIDISM [None]
  - MEDICATION ERROR [None]
  - PHARMACEUTICAL PRODUCT COMPLAINT [None]
  - PROTEIN URINE [None]
  - RETINOPATHY [None]
